FAERS Safety Report 13316193 (Version 2)
Quarter: 2017Q3

REPORT INFORMATION
  Report Type: Spontaneous
  Country: US (occurrence: US)
  Receive Date: 20170310
  Receipt Date: 20170724
  Transmission Date: 20171127
  Serious: No
  Sender: FDA-Public Use
  Company Number: US-ASTRAZENECA-2017SE22230

PATIENT
  Age: 60 Year
  Sex: Female
  Weight: 76.7 kg

DRUGS (4)
  1. CALCIUM [Concomitant]
     Active Substance: CALCIUM
     Route: 048
  2. SYMBICORT [Suspect]
     Active Substance: BUDESONIDE\FORMOTEROL FUMARATE DIHYDRATE
     Indication: DYSPNOEA
     Dosage: 160/4.5MCG TWO INHALATIONS TWICE DAILY
     Route: 055
     Dates: start: 2014
  3. SYMBICORT [Suspect]
     Active Substance: BUDESONIDE\FORMOTEROL FUMARATE DIHYDRATE
     Indication: LUNG DISORDER
     Dosage: 160/4.5MCG TWO INHALATIONS TWICE DAILY
     Route: 055
     Dates: start: 2014
  4. SYMBICORT [Suspect]
     Active Substance: BUDESONIDE\FORMOTEROL FUMARATE DIHYDRATE
     Indication: ASTHMA
     Dosage: 160/4.5MCG TWO INHALATIONS TWICE DAILY
     Route: 055
     Dates: start: 2014

REACTIONS (8)
  - Device use error [Unknown]
  - Respiratory tract congestion [Recovering/Resolving]
  - Product use issue [Unknown]
  - Influenza [Recovering/Resolving]
  - Sneezing [Not Recovered/Not Resolved]
  - Drug dose omission [Recovered/Resolved]
  - Off label use [Unknown]
  - Intentional product misuse [Unknown]

NARRATIVE: CASE EVENT DATE: 2011
